FAERS Safety Report 10761472 (Version 1)
Quarter: 2015Q1

REPORT INFORMATION
  Report Type: Spontaneous
  Country: US (occurrence: None)
  Receive Date: 20150203
  Receipt Date: 20150203
  Transmission Date: 20150721
  Serious: Yes (Death, Life-Threatening)
  Sender: FDA-Public Use
  Company Number: None

PATIENT
  Age: 62 Year
  Sex: Male
  Weight: 69.9 kg

DRUGS (1)
  1. COUMADIN [Suspect]
     Active Substance: WARFARIN SODIUM

REACTIONS (9)
  - Haematuria [None]
  - Pyelonephritis [None]
  - Device related infection [None]
  - Diarrhoea [None]
  - Confusional state [None]
  - Headache [None]
  - Subdural haematoma [None]
  - Vomiting [None]
  - Head injury [None]

NARRATIVE: CASE EVENT DATE: 20140730
